FAERS Safety Report 16158112 (Version 2)
Quarter: 2019Q2

REPORT INFORMATION
  Report Type: Spontaneous
  Country: US (occurrence: US)
  Receive Date: 20190404
  Receipt Date: 20190411
  Transmission Date: 20190711
  Serious: No
  Sender: FDA-Public Use
  Company Number: US-ARALEZ PHARMACEUTICALS R+D INC.-2019-ARA-000929

PATIENT
  Age: 52 Year
  Sex: Male

DRUGS (2)
  1. METOPROLOL SUCCINATE. [Suspect]
     Active Substance: METOPROLOL SUCCINATE
     Indication: TACHYCARDIA
     Dosage: UNK
     Dates: start: 20190325
  2. TOPROL XL [Suspect]
     Active Substance: METOPROLOL SUCCINATE
     Indication: TACHYCARDIA
     Dosage: UNK

REACTIONS (2)
  - Off label use [Unknown]
  - Drug ineffective for unapproved indication [Recovered/Resolved]

NARRATIVE: CASE EVENT DATE: 20190326
